FAERS Safety Report 6892596-5 (Version None)
Quarter: 2010Q3

REPORT INFORMATION
  Report Type: 
  Country: None (occurrence: None)
  Receive Date: 20100731
  Receipt Date: 20080715
  Transmission Date: 20110219
  Serious: No
  Sender: FDA-Public Use
  Company Number: US-PFIZER INC-2008038797

PATIENT
  Sex: Female
  Weight: 89.36 kg

DRUGS (2)
  1. DEPO-MEDROL [Suspect]
     Dates: start: 20080402
  2. MARCAINE [Concomitant]

REACTIONS (3)
  - BURNING SENSATION [None]
  - PAIN [None]
  - SWELLING [None]
